FAERS Safety Report 6317654-5 (Version None)
Quarter: 2009Q3

REPORT INFORMATION
  Report Type: 
  Country: None (occurrence: None)
  Receive Date: 20090821
  Receipt Date: 20090816
  Transmission Date: 20100115
  Serious: Yes (Other)
  Sender: FDA-Public Use
  Company Number: US-WYE-H10649709

PATIENT
  Age: 77 Year
  Sex: Female
  Weight: 70 kg

DRUGS (4)
  1. TYGACIL [Suspect]
     Indication: LOCALISED INFECTION
     Dosage: 100 MG DOSE FOLLOWED BY 50 MG TWICE A DAY
     Route: 042
     Dates: start: 20090807, end: 20090817
  2. TYGACIL [Suspect]
     Indication: SKIN INFECTION
  3. CEFTRIAXONE [Suspect]
     Indication: LOCALISED INFECTION
     Route: 042
  4. CEFTRIAXONE [Suspect]
     Indication: SKIN INFECTION

REACTIONS (4)
  - ASTHENIA [None]
  - DIARRHOEA [None]
  - FATIGUE [None]
  - MELAENA [None]
